FAERS Safety Report 9461944 (Version 1)
Quarter: 2013Q3

REPORT INFORMATION
  Report Type: Spontaneous
  Country: GB (occurrence: GB)
  Receive Date: 20130816
  Receipt Date: 20130816
  Transmission Date: 20140515
  Serious: Yes (Hospitalization)
  Sender: FDA-Public Use
  Company Number: GB-JNJFOC-20130806493

PATIENT
  Age: 80 Year
  Sex: Male
  Weight: 61 kg

DRUGS (11)
  1. XARELTO [Suspect]
     Indication: ATRIAL FIBRILLATION
     Route: 048
  2. XARELTO [Suspect]
     Indication: CEREBROVASCULAR ACCIDENT PROPHYLAXIS
     Route: 048
  3. ATORVASTATIN [Concomitant]
     Route: 065
  4. CARBOCISTEINE [Concomitant]
     Route: 065
  5. DOXAZOSIN [Concomitant]
     Route: 065
  6. FUROSEMIDE [Concomitant]
     Route: 065
  7. GLIMEPIRIDE [Concomitant]
     Route: 065
  8. LOSARTAN [Concomitant]
     Route: 065
  9. PREDNISOLONE [Concomitant]
     Route: 065
  10. SERETIDE [Concomitant]
     Route: 065
  11. THYROXINE [Concomitant]
     Route: 065

REACTIONS (3)
  - Subdural haemorrhage [Not Recovered/Not Resolved]
  - Condition aggravated [Not Recovered/Not Resolved]
  - Medication error [Unknown]
